FAERS Safety Report 11185530 (Version 2)
Quarter: 2015Q3

REPORT INFORMATION
  Report Type: Spontaneous
  Country: BR (occurrence: BR)
  Receive Date: 20150612
  Receipt Date: 20150709
  Transmission Date: 20151125
  Serious: Yes (Hospitalization, Other)
  Sender: FDA-Public Use
  Company Number: BR-PFIZER INC-2015193248

PATIENT
  Age: 53 Year
  Sex: Female
  Weight: 80 kg

DRUGS (3)
  1. LIPITOR [Suspect]
     Active Substance: ATORVASTATIN CALCIUM
     Indication: BLOOD CHOLESTEROL INCREASED
  2. LIPITOR [Suspect]
     Active Substance: ATORVASTATIN CALCIUM
     Indication: BLOOD CHOLESTEROL
     Dosage: 1 TABLET, DAILY OF 20 MG AFTER DINNER (ONCE A DAY)
     Route: 048
     Dates: start: 201308
  3. ADDERA D3 [Concomitant]
     Active Substance: CHOLECALCIFEROL
     Dosage: ONE UNIT (1000 IU), DAILY
     Dates: start: 201409

REACTIONS (5)
  - Ankle fracture [Recovered/Resolved]
  - Ligament rupture [Recovered/Resolved]
  - Hypertension [Recovered/Resolved]
  - Thyroid disorder [Unknown]
  - Fall [Recovered/Resolved]

NARRATIVE: CASE EVENT DATE: 20131204
